FAERS Safety Report 6572446-7 (Version None)
Quarter: 2010Q1

REPORT INFORMATION
  Report Type: 
  Country: None (occurrence: None)
  Receive Date: 20100205
  Receipt Date: 20100127
  Transmission Date: 20100710
  Serious: Yes (Hospitalization)
  Sender: FDA-Public Use
  Company Number: CH-PFIZER INC-2010010817

PATIENT
  Age: 79 Year
  Sex: Male

DRUGS (9)
  1. SILDENAFIL CITRATE [Suspect]
     Indication: PULMONARY ARTERIAL HYPERTENSION
     Dosage: 25 MG, 3X/DAY
     Route: 048
     Dates: start: 20090819
  2. MARCUMAR [Suspect]
     Indication: EMBOLISM
     Dosage: UNK
     Dates: start: 19970101
  3. MARCUMAR [Suspect]
     Indication: THROMBOSIS
  4. ASPIRIN [Concomitant]
     Dosage: 100 MG, 1X/DAY
     Route: 048
     Dates: start: 19930101
  5. PRAVASTATIN [Concomitant]
     Dosage: 40 MG, 1X/DAY
     Route: 048
  6. ZESTRIL [Concomitant]
     Dosage: 5 MG, 1X/DAY
     Route: 048
  7. OXYCONTIN [Concomitant]
     Dosage: 10 MG, 2X/DAY
     Route: 048
     Dates: start: 20090819
  8. PANTOZOL [Concomitant]
     Dosage: 40 MG, 1X/DAY
     Route: 048
  9. CITALOPRAM [Concomitant]
     Dosage: 20 MG, 1X/DAY
     Route: 048

REACTIONS (1)
  - PROTHROMBIN LEVEL DECREASED [None]
